FAERS Safety Report 5027039-X (Version None)
Quarter: 2006Q2

REPORT INFORMATION
  Report Type: 
  Country: None (occurrence: None)
  Receive Date: 20060609
  Receipt Date: 20060602
  Transmission Date: 20061013
  Serious: Yes (Death)
  Sender: FDA-Public Use
  Company Number: 2006071527

PATIENT
  Sex: Female

DRUGS (2)
  1. CELEBREX [Suspect]
     Indication: WRIST FRACTURE
     Dosage: ORAL
     Route: 048
     Dates: start: 20040101
  2. IMMUNOSUPPRESSIVE AGENTS (IMMUNOSUPPRESSIVE AGENS) [Concomitant]

REACTIONS (4)
  - PEMPHIGUS [None]
  - RENAL FAILURE CHRONIC [None]
  - RENAL TRANSPLANT [None]
  - WRIST FRACTURE [None]
